FAERS Safety Report 7749873-5 (Version None)
Quarter: 2011Q3

REPORT INFORMATION
  Report Type: 
  Country: None (occurrence: None)
  Receive Date: 20110914
  Receipt Date: 20110908
  Transmission Date: 20111222
  Serious: Yes (Hospitalization)
  Sender: FDA-Public Use
  Company Number: NL-SANOFI-AVENTIS-2011SA058586

PATIENT
  Age: 49 Year
  Sex: Male
  Weight: 80 kg

DRUGS (1)
  1. RILUTEK [Suspect]
     Indication: SPINAL MUSCULAR ATROPHY
     Route: 048
     Dates: start: 20110428, end: 20110830

REACTIONS (1)
  - EOSINOPHILIC PNEUMONIA [None]
